FAERS Safety Report 5392133-0 (Version None)
Quarter: 2007Q3

REPORT INFORMATION
  Report Type: 
  Country: None (occurrence: None)
  Receive Date: 20070718
  Receipt Date: 20070718
  Transmission Date: 20080115
  Serious: No
  Sender: FDA-Public Use
  Company Number: None

PATIENT
  Age: 61 Year
  Sex: Male

DRUGS (1)
  1. DOXAZOSIN MESYLATE [Suspect]
     Dosage: 4MG EVERY DAY PO
     Route: 048
     Dates: start: 20070502, end: 20070516

REACTIONS (1)
  - OEDEMA PERIPHERAL [None]
